FAERS Safety Report 6241357-9 (Version None)
Quarter: 2009Q2

REPORT INFORMATION
  Report Type: 
  Country: None (occurrence: None)
  Receive Date: 20090619
  Receipt Date: 20090619
  Transmission Date: 20091009
  Serious: Yes (Other)
  Sender: FDA-Public Use
  Company Number: None

PATIENT
  Age: 44 Year
  Sex: Male
  Weight: 68.0396 kg

DRUGS (2)
  1. ZICAM NASAL SPRAY ZICAM [Suspect]
     Indication: NASOPHARYNGITIS
     Dosage: 1 EVERY 4 HRS INTRACISTERNAL
     Route: 020
     Dates: start: 20001117, end: 20090617
  2. ZICAM NASAL SWABS ZICAM [Suspect]
     Indication: NASOPHARYNGITIS
     Dosage: 1 EVERY 4 HRS INTRACISTERNAL
     Route: 020
     Dates: start: 20001117, end: 20090617

REACTIONS (1)
  - BURNING SENSATION [None]
